FAERS Safety Report 8009189-9 (Version None)
Quarter: 2011Q4

REPORT INFORMATION
  Report Type: 
  Country: None (occurrence: None)
  Receive Date: 20111227
  Receipt Date: 20111222
  Transmission Date: 20120403
  Serious: Yes (Death)
  Sender: FDA-Public Use
  Company Number: US-CELGENEUS-163-21880-11123142

PATIENT
  Sex: Male
  Weight: 70.824 kg

DRUGS (8)
  1. COREG [Concomitant]
     Dosage: 12.5 MILLIGRAM
     Route: 065
  2. PLAVIX [Concomitant]
     Dosage: 75 MILLIGRAM
     Route: 065
  3. REVLIMID [Suspect]
     Indication: MULTIPLE MYELOMA
     Dosage: 25 MILLIGRAM
     Route: 048
     Dates: start: 20111031, end: 20110101
  4. LOVASTATIN [Concomitant]
     Dosage: 20 MILLIGRAM
     Route: 065
  5. FENOFIBRATE [Concomitant]
     Dosage: 160 MILLIGRAM
     Route: 065
  6. ULTRACET [Concomitant]
     Dosage: 37.5-325MG
     Route: 065
  7. DEXAMETHASONE [Concomitant]
     Dosage: 1 MILLIGRAM
     Route: 065
  8. AMLODIPINE [Concomitant]
     Dosage: 5 MILLIGRAM
     Route: 065

REACTIONS (1)
  - DEATH [None]
